FAERS Safety Report 23074565 (Version 1)
Quarter: 2023Q4

REPORT INFORMATION
  Report Type: Spontaneous
  Country: PT (occurrence: PT)
  Receive Date: 20231017
  Receipt Date: 20231017
  Transmission Date: 20240109
  Serious: Yes (Hospitalization, Disabling, Other)
  Sender: FDA-Public Use
  Company Number: PT-Accord-369241

PATIENT
  Age: 67 Year
  Sex: Male

DRUGS (2)
  1. METHOTREXATE [Suspect]
     Active Substance: METHOTREXATE
     Indication: Psoriasis
     Dosage: 7.5 MG/WEEK
  2. FOLIC ACID [Concomitant]
     Active Substance: FOLIC ACID
     Indication: Psoriasis

REACTIONS (6)
  - Drug level increased [Unknown]
  - Stomatitis [Recovered/Resolved]
  - Toxic skin eruption [Recovered/Resolved]
  - Pancytopenia [Recovered/Resolved]
  - Skin ulcer [Recovered/Resolved]
  - Toxicity to various agents [Recovered/Resolved]
